FAERS Safety Report 5922208-6 (Version None)
Quarter: 2008Q4

REPORT INFORMATION
  Report Type: 
  Country: None (occurrence: None)
  Receive Date: 20081014
  Receipt Date: 20081007
  Transmission Date: 20090506
  Serious: Yes (Death, Hospitalization)
  Sender: FDA-Public Use
  Company Number: 2008BI005999

PATIENT
  Age: 49 Year
  Sex: Female

DRUGS (1)
  1. TYSABRI [Suspect]
     Indication: MULTIPLE SCLEROSIS
     Dosage: 300 MG; QM; IV
     Route: 042
     Dates: start: 20070720, end: 20080204

REACTIONS (12)
  - BRAIN OEDEMA [None]
  - COGNITIVE DISORDER [None]
  - COMA [None]
  - CONDITION AGGRAVATED [None]
  - CONSCIOUSNESS FLUCTUATING [None]
  - DISEASE PROGRESSION [None]
  - GAIT DISTURBANCE [None]
  - GENERAL PHYSICAL HEALTH DETERIORATION [None]
  - HEMIPLEGIA [None]
  - MULTIPLE SCLEROSIS [None]
  - MUSCLE RIGIDITY [None]
  - WHITE BLOOD CELL COUNT INCREASED [None]
